FAERS Safety Report 8314006-3 (Version None)
Quarter: 2012Q2

REPORT INFORMATION
  Report Type: 
  Country: None (occurrence: None)
  Receive Date: 20120426
  Receipt Date: 20120418
  Transmission Date: 20120825
  Serious: Yes (Hospitalization)
  Sender: FDA-Public Use
  Company Number: US-BAYER-2011-075116

PATIENT
  Age: 37 Year
  Sex: Female
  Weight: 88.435 kg

DRUGS (12)
  1. MULTI-VITAMINS [Concomitant]
     Dosage: UNK
  2. GLUCOSAMINE [Concomitant]
     Dosage: UNK
  3. ASPIRIN [Concomitant]
     Dosage: 325 MG, UNK
     Dates: start: 20080626
  4. TRAMADOL HCL [Concomitant]
     Indication: PAIN
     Dosage: 100 MG, DAILY
  5. YAZ [Suspect]
     Indication: CONTRACEPTION
     Dosage: UNK
     Route: 048
     Dates: start: 20051110, end: 20080628
  6. MIDAZOLAM [Concomitant]
     Dosage: UNK
     Route: 042
     Dates: start: 20080626
  7. CELEBREX [Concomitant]
     Indication: FIBROMYALGIA
     Dosage: UNK
     Dates: start: 20030101, end: 20090101
  8. DECADRON [Concomitant]
     Dosage: UNK
     Dates: start: 20080626
  9. GABAPENTIN [Concomitant]
     Indication: RESTLESS LEGS SYNDROME
     Dosage: UNK
     Dates: start: 20050101
  10. KEFZOL [Concomitant]
     Dosage: 1 G, UNK
     Dates: start: 20080626
  11. PROZAC [Concomitant]
     Indication: DEPRESSION
     Dosage: UNK
     Dates: start: 19990101, end: 20080101
  12. FENTANYL [Concomitant]
     Dosage: UNK
     Dates: start: 20080626

REACTIONS (2)
  - DEEP VEIN THROMBOSIS [None]
  - INJURY [None]
